FAERS Safety Report 7064701-1 (Version None)
Quarter: 2010Q4

REPORT INFORMATION
  Report Type: 
  Country: None (occurrence: None)
  Receive Date: 20101027
  Receipt Date: 20101020
  Transmission Date: 20110411
  Serious: Yes (Hospitalization)
  Sender: FDA-Public Use
  Company Number: DE-ABBOTT-10P-062-0671093-00

PATIENT
  Sex: Female
  Weight: 70 kg

DRUGS (3)
  1. HUMIRA [Suspect]
     Indication: RHEUMATOID ARTHRITIS
     Dosage: 40 MG EOW
     Route: 058
     Dates: start: 20060719
  2. PREDNISONE [Concomitant]
     Indication: RHEUMATOID ARTHRITIS
     Dosage: 5 MG DAILIY
     Route: 048
     Dates: start: 20000201
  3. VOLTAREN [Concomitant]
     Indication: RHEUMATOID ARTHRITIS
     Dosage: EVERY DAY
     Route: 048
     Dates: start: 20000201

REACTIONS (2)
  - HOSPITALISATION [None]
  - SPINAL COLUMN STENOSIS [None]
